FAERS Safety Report 7435667-7 (Version None)
Quarter: 2011Q2

REPORT INFORMATION
  Report Type: 
  Country: None (occurrence: None)
  Receive Date: 20110425
  Receipt Date: 20110412
  Transmission Date: 20111010
  Serious: Yes (Hospitalization)
  Sender: FDA-Public Use
  Company Number: PHHY2011US30371

PATIENT
  Age: 11 Year
  Sex: Male

DRUGS (1)
  1. AZITHROMYCIN [Suspect]
     Indication: PNEUMONIA
     Dosage: UNK UKN, UNK

REACTIONS (3)
  - INSOMNIA [None]
  - CHOREOATHETOSIS [None]
  - AGITATION [None]
